FAERS Safety Report 8994879 (Version 2)
Quarter: 2013Q1

REPORT INFORMATION
  Report Type: Spontaneous
  Country: DE (occurrence: None)
  Receive Date: 20121221
  Receipt Date: 20130103
  Transmission Date: 20140127
  Serious: Yes (Hospitalization)
  Sender: FDA-Public Use
  Company Number: DSA_61481_2012

PATIENT
  Age: 21 Year
  Sex: Male

DRUGS (7)
  1. ELONTRIL [Suspect]
     Indication: PRODUCT USED FOR UNKNOWN INDICATION
     Dosage: (30 TABLETS (9000 MG); ONE TIME DOSE; NOT AS PRESCRIBED ORAL)
     Dates: start: 20121215, end: 20121215
  2. QUETIAPINE [Suspect]
     Indication: PRODUCT USED FOR UNKNOWN INDICATION
     Dosage: (20 TABLETS (500 MG); ONE TIME DOSE; NOT AS PRESCRIBED ORAL)
     Dates: start: 20121215, end: 20121215
  3. LASEA-LAVENDER OIL 80 MG [Suspect]
     Indication: PRODUCT USED FOR UNKNOWN INDICATION
     Dosage: (DF; ONE TIME DOSE; NOT AS PRESCRIBED)
     Dates: start: 20121215, end: 20121215
  4. PENHEXAL-PHENOXYMETHYLPENICILLIN POTASSIUM) (NOT SPECIFIED) [Suspect]
     Indication: PRODUCT USED FOR UNKNOWN INDICATION
     Dosage: (DF; ONE TIME DOSE; NOT AS PRESCRIBED ORAL)
     Dates: start: 20121215, end: 20121215
  5. ETHANOL (ETHANOL LIQUID) [Suspect]
     Indication: PRODUCT USED FOR UNKNOWN INDICATION
     Dosage: (DF; ONE TIME DOSE; NOT AS PRESCRIBED ORAL)
     Dates: start: 20121215, end: 20121215
  6. PEP-METHAMPHETAMINE HYDROCHLORIDE [Suspect]
     Indication: PRODUCT USED FOR UNKNOWN INDICATION
     Dosage: (DF; ONE TIME DOSE; NOT AS PRESCRIBED ORAL)
     Dates: start: 20121215, end: 20121215
  7. CANNABIS (CANNABIS-TETRAHYDROCANNABINOL) [Suspect]
     Indication: PRODUCT USED FOR UNKNOWN INDICATION
     Dosage: (DF; ONE TIME DOSE; NOT AS PRESCRIBED)
     Dates: start: 20121215, end: 20121215

REACTIONS (7)
  - Convulsion [None]
  - Suicide attempt [None]
  - Intentional overdose [None]
  - Ileus paralytic [None]
  - Tachycardia [None]
  - Aggression [None]
  - Somnolence [None]
